FAERS Safety Report 16871252 (Version 1)
Quarter: 2019Q4

REPORT INFORMATION
  Report Type: Spontaneous
  Country: US (occurrence: US)
  Receive Date: 20191001
  Receipt Date: 20191001
  Transmission Date: 20200122
  Serious: No
  Sender: FDA-Public Use
  Company Number: US-JNJFOC-20190930448

PATIENT
  Age: 12 Year
  Sex: Female

DRUGS (1)
  1. INFANTS TYLENOL [Suspect]
     Active Substance: ACETAMINOPHEN
     Indication: PYREXIA
     Dosage: FORMULATION: LIQUID, HALF A DOSE
     Route: 065

REACTIONS (2)
  - Adverse event [Unknown]
  - Product administered to patient of inappropriate age [Unknown]
